FAERS Safety Report 5226855-9 (Version None)
Quarter: 2007Q1

REPORT INFORMATION
  Report Type: 
  Country: None (occurrence: None)
  Receive Date: 20070130
  Receipt Date: 20070115
  Transmission Date: 20070707
  Serious: Yes (Other)
  Sender: FDA-Public Use
  Company Number: 2007S1000054

PATIENT
  Age: 55 Year
  Sex: Female

DRUGS (2)
  1. CUBICIN [Suspect]
     Indication: ENDOCARDITIS ENTEROCOCCAL
     Dosage: 6 MG/KG;Q48H;IV
     Route: 042
     Dates: start: 20040801, end: 20040901
  2. CUBICIN [Suspect]
     Indication: ENTEROCOCCAL BACTERAEMIA
     Dosage: 6 MG/KG;Q48H;IV
     Route: 042
     Dates: start: 20040801, end: 20040901

REACTIONS (4)
  - AORTIC VALVE INCOMPETENCE [None]
  - BACTERAEMIA [None]
  - CATHETER SITE OEDEMA [None]
  - ESCHERICHIA INFECTION [None]
